FAERS Safety Report 4578303-X (Version None)
Quarter: 2005Q1

REPORT INFORMATION
  Report Type: 
  Country: None (occurrence: None)
  Receive Date: 20050204
  Receipt Date: 20050204
  Transmission Date: 20050727
  Serious: No
  Sender: FDA-Public Use
  Company Number: None

PATIENT
  Sex: Female

DRUGS (1)
  1. NADOLOL [Suspect]
     Dosage: 20 MG P.O. BID
     Route: 048

REACTIONS (2)
  - EYE DISORDER [None]
  - SENSORY DISTURBANCE [None]
